FAERS Safety Report 6313777-5 (Version None)
Quarter: 2009Q3

REPORT INFORMATION
  Report Type: 
  Country: None (occurrence: None)
  Receive Date: 20090818
  Receipt Date: 20081212
  Transmission Date: 20100115
  Serious: No
  Sender: FDA-Public Use
  Company Number: US-BRISTOL-MYERS SQUIBB COMPANY-14443634

PATIENT

DRUGS (3)
  1. REYATAZ [Suspect]
  2. VIRAMUNE [Suspect]
  3. NORVIR [Concomitant]

REACTIONS (1)
  - DRUG ADMINISTRATION ERROR [None]
